FAERS Safety Report 20135292 (Version 1)
Quarter: 2021Q4

REPORT INFORMATION
  Report Type: Spontaneous
  Country: IT (occurrence: IT)
  Receive Date: 20211201
  Receipt Date: 20211201
  Transmission Date: 20220303
  Serious: Yes (Hospitalization)
  Sender: FDA-Public Use
  Company Number: IT-ABBVIE-21K-083-4179545-00

PATIENT
  Age: 39 Year
  Sex: Male

DRUGS (2)
  1. VALPROATE SODIUM [Suspect]
     Active Substance: VALPROATE SODIUM
     Indication: Bipolar II disorder
     Route: 048
     Dates: start: 20200709
  2. CLOZAPINE [Suspect]
     Active Substance: CLOZAPINE
     Indication: Psychiatric decompensation
     Route: 048
     Dates: start: 20200709

REACTIONS (4)
  - Medication error [Unknown]
  - Withdrawal syndrome [Recovering/Resolving]
  - Bradyphrenia [Recovering/Resolving]
  - Hypokinesia [Recovering/Resolving]

NARRATIVE: CASE EVENT DATE: 20200710
